FAERS Safety Report 6249057-6 (Version None)
Quarter: 2009Q2

REPORT INFORMATION
  Report Type: 
  Country: None (occurrence: None)
  Receive Date: 20090624
  Receipt Date: 20090624
  Transmission Date: 20091009
  Serious: Yes (Life-Threatening, Hospitalization, Disabling)
  Sender: FDA-Public Use
  Company Number: None

PATIENT
  Age: 70 Year
  Sex: Female
  Weight: 90.7194 kg

DRUGS (1)
  1. DILTIAZEM HCL [Suspect]
     Indication: HYPERTENSION
     Dosage: 1 CAPSULE DAILY PO
     Route: 048
     Dates: start: 20020601, end: 20090618

REACTIONS (8)
  - ABDOMINAL DISCOMFORT [None]
  - CARDIOVASCULAR DISORDER [None]
  - CHEST DISCOMFORT [None]
  - EXTRASYSTOLES [None]
  - HEART RATE DECREASED [None]
  - HYPOTENSION [None]
  - NEPHROLITHIASIS [None]
  - PULSE PRESSURE DECREASED [None]
